FAERS Safety Report 9421990 (Version 1)
Quarter: 2013Q3

REPORT INFORMATION
  Report Type: Spontaneous
  Country: US (occurrence: US)
  Receive Date: 20130726
  Receipt Date: 20130726
  Transmission Date: 20140515
  Serious: Yes (Hospitalization)
  Sender: FDA-Public Use
  Company Number: US-BAYER-2013-088196

PATIENT
  Age: 31 Year
  Sex: Female
  Weight: 63.49 kg

DRUGS (8)
  1. YASMIN [Suspect]
     Dosage: UNK
  2. OXYCODONE [Concomitant]
  3. PERCOCET [Concomitant]
  4. DOCUSATE [Concomitant]
  5. VALIUM [Concomitant]
  6. CORTISONE [Concomitant]
     Route: 042
  7. PREDNISONE [Concomitant]
  8. OMEPRAZOLE [Concomitant]
     Dosage: 40 MG, DAILY
     Dates: start: 20120523

REACTIONS (2)
  - Peripheral artery thrombosis [None]
  - Subclavian artery thrombosis [None]
